FAERS Safety Report 8585165-2 (Version None)
Quarter: 2012Q3

REPORT INFORMATION
  Report Type: 
  Country: None (occurrence: None)
  Receive Date: 20120810
  Receipt Date: 20120806
  Transmission Date: 20120928
  Serious: Yes (Hospitalization, Other)
  Sender: FDA-Public Use
  Company Number: PHHY2012AR006818

PATIENT
  Sex: Female

DRUGS (2)
  1. DIOVAN [Suspect]
     Indication: HYPERTENSION
     Dosage: 80 MG, DAILY
  2. INSULIN [Concomitant]
     Dosage: UNK

REACTIONS (9)
  - COUGH [None]
  - PULMONARY OEDEMA [None]
  - WEIGHT INCREASED [None]
  - SYNCOPE [None]
  - ARRHYTHMIA [None]
  - OEDEMA PERIPHERAL [None]
  - DIABETIC RETINOPATHY [None]
  - HYPERHIDROSIS [None]
  - HYPOTENSION [None]
